FAERS Safety Report 5737061-3 (Version None)
Quarter: 2008Q2

REPORT INFORMATION
  Report Type: 
  Country: None (occurrence: None)
  Receive Date: 20080512
  Receipt Date: 20080512
  Transmission Date: 20081010
  Serious: Yes (Hospitalization)
  Sender: FDA-Public Use
  Company Number: None

PATIENT
  Age: 85 Year
  Sex: Female
  Weight: 61.2356 kg

DRUGS (1)
  1. DIGITEK  0.125 MG [Suspect]
     Indication: CARDIAC FAILURE
     Dosage: 1 DAY ORALLY
     Route: 048

REACTIONS (6)
  - DIZZINESS [None]
  - FALL [None]
  - PARAESTHESIA [None]
  - PHARMACEUTICAL PRODUCT COMPLAINT [None]
  - STOMACH DISCOMFORT [None]
  - TREMOR [None]
